FAERS Safety Report 6708602-4 (Version None)
Quarter: 2010Q2

REPORT INFORMATION
  Report Type: 
  Country: None (occurrence: None)
  Receive Date: 20100503
  Receipt Date: 20100421
  Transmission Date: 20101027
  Serious: Yes (Hospitalization)
  Sender: FDA-Public Use
  Company Number: GB-PFIZER INC-2010000299

PATIENT
  Sex: Female

DRUGS (20)
  1. GABAPENTIN [Suspect]
     Indication: NEURALGIA
     Dosage: 1.8 G, 1X/DAY
     Route: 064
  2. MORPHINE SULFATE [Suspect]
     Indication: MYELITIS TRANSVERSE
     Dosage: 15 MG, 1X/DAY IN THE EVENING
     Route: 064
  3. MORPHINE SULFATE [Suspect]
     Indication: NEURALGIA
  4. FLUOXETINE HYDROCHLORIDE [Suspect]
     Indication: MAJOR DEPRESSION
     Route: 064
  5. TRAMADOL HYDROCHLORIDE [Suspect]
     Indication: MYELITIS TRANSVERSE
     Dosage: 100 MG, EVERY 6 HRS
     Route: 064
  6. TRAMADOL HYDROCHLORIDE [Suspect]
     Indication: NEURALGIA
  7. AMITRIPTYLINE [Suspect]
     Indication: MYELITIS TRANSVERSE
     Dosage: 25 MG, 1X/DAY
     Route: 064
  8. AMITRIPTYLINE [Suspect]
     Indication: NEURALGIA
  9. TRIFLUOPERAZINE [Suspect]
     Indication: MAJOR DEPRESSION
     Route: 064
  10. HEPARIN [Concomitant]
     Dosage: 5000 UNK, EVERY 12HRS
     Route: 064
  11. NORMAL HUMAN IMMUNOGLOBULIN [Concomitant]
     Dosage: 42 MG, 1X/DAY
     Route: 064
  12. ISOFLURANE [Concomitant]
     Route: 064
  13. METHYLPREDNISOLONE [Concomitant]
     Dosage: 1 G, 1X/DAY
     Route: 064
  14. NITROUS OXIDE [Concomitant]
     Route: 064
  15. PARACETAMOL [Concomitant]
     Dosage: 1 G, EVERY 6 HRS
     Route: 064
  16. RANITIDINE [Concomitant]
     Dosage: 150 MG, 1X/DAY
     Route: 064
  17. ROCURONIUM [Concomitant]
     Dosage: 60 MG, 1X/DAY
     Route: 064
  18. SODIUM CITRATE [Concomitant]
     Dosage: 30 ML, 1X/DAY
     Route: 064
  19. THIOPENTAL [Concomitant]
     Dosage: 450 MG, 1X/DAY
     Route: 064
  20. VITAMIN B-12 [Concomitant]
     Dosage: 1 MG, 1X/DAY
     Route: 064

REACTIONS (3)
  - DRUG EXPOSURE DURING PREGNANCY [None]
  - DRUG WITHDRAWAL SYNDROME [None]
  - INFANTILE APNOEIC ATTACK [None]
